FAERS Safety Report 5123392-7 (Version None)
Quarter: 2006Q4

REPORT INFORMATION
  Report Type: 
  Country: None (occurrence: None)
  Receive Date: 20061009
  Receipt Date: 20061005
  Transmission Date: 20070319
  Serious: Yes (Death)
  Sender: FDA-Public Use
  Company Number: US-BRISTOL-MYERS SQUIBB COMPANY-13531348

PATIENT
  Age: 84 Year
  Sex: Male
  Weight: 61 kg

DRUGS (9)
  1. SINEMET [Suspect]
     Indication: PARKINSON'S DISEASE
     Route: 048
     Dates: start: 20060701
  2. DIGOXIN [Concomitant]
     Dosage: DURATION OF THERAPY:  YEARS
  3. ASPIRIN [Concomitant]
     Dosage: DURATION OF THERAPY:  YEARS
  4. PLAVIX [Concomitant]
     Route: 048
  5. PREVACID [Concomitant]
  6. MEGACE [Concomitant]
  7. ASCORBIC ACID [Concomitant]
  8. ALBUTEROL [Concomitant]
  9. SEREVENT [Concomitant]

REACTIONS (1)
  - CARDIAC FAILURE [None]
